FAERS Safety Report 4660095-7 (Version None)
Quarter: 2005Q2

REPORT INFORMATION
  Report Type: 
  Country: None (occurrence: None)
  Receive Date: 20050512
  Receipt Date: 20050222
  Transmission Date: 20051028
  Serious: Yes (Hospitalization)
  Sender: FDA-Public Use
  Company Number: JP-BRISTOL-MYERS SQUIBB COMPANY-12878344

PATIENT
  Age: 77 Year
  Sex: Male

DRUGS (11)
  1. GATIFLO TABS 100 MG [Suspect]
     Indication: NASOPHARYNGITIS
     Route: 048
     Dates: start: 20050204, end: 20050209
  2. PELEX [Suspect]
     Indication: NASOPHARYNGITIS
     Route: 048
     Dates: start: 20050204, end: 20050209
  3. NICHOLASE [Concomitant]
     Indication: NASOPHARYNGITIS
     Route: 048
     Dates: start: 20050204, end: 20050209
  4. MEDICON [Suspect]
     Indication: NASOPHARYNGITIS
     Route: 048
     Dates: start: 20050204, end: 20050209
  5. BLOPRESS [Concomitant]
     Route: 048
  6. NORVASC [Concomitant]
     Route: 048
  7. PROTECADIN [Concomitant]
     Indication: NASOPHARYNGITIS
     Route: 048
  8. GANATON [Concomitant]
     Route: 048
  9. TERNELIN [Concomitant]
     Route: 048
  10. JUVELA NICOTINATE [Concomitant]
     Route: 048
  11. CHINESE HERBS [Concomitant]
     Route: 048

REACTIONS (1)
  - MYOCLONUS [None]
